FAERS Safety Report 10621188 (Version 7)
Quarter: 2015Q3

REPORT INFORMATION
  Report Type: Spontaneous
  Country: CA (occurrence: CA)
  Receive Date: 20141203
  Receipt Date: 20150724
  Transmission Date: 20151125
  Serious: Yes (Other)
  Sender: FDA-Public Use
  Company Number: CA-ROCHE-1499211

PATIENT
  Sex: Female

DRUGS (4)
  1. SYMBICORT [Concomitant]
     Active Substance: BUDESONIDE\FORMOTEROL FUMARATE DIHYDRATE
  2. ALVESCO [Concomitant]
     Active Substance: CICLESONIDE
  3. XOLAIR [Suspect]
     Active Substance: OMALIZUMAB
     Route: 058
     Dates: start: 20150702
  4. XOLAIR [Suspect]
     Active Substance: OMALIZUMAB
     Indication: ASTHMA
     Route: 058
     Dates: start: 20140811

REACTIONS (18)
  - Neck pain [Unknown]
  - Thrombosis [Unknown]
  - Pain in extremity [Unknown]
  - Joint swelling [Recovered/Resolved]
  - Respiratory tract congestion [Unknown]
  - Coronary artery disease [Unknown]
  - Chronic obstructive pulmonary disease [Unknown]
  - Haemorrhage [Unknown]
  - Arthralgia [Unknown]
  - Feeling abnormal [Unknown]
  - Fatigue [Unknown]
  - Foot deformity [Unknown]
  - Respiratory disorder [Unknown]
  - Pain [Unknown]
  - Heart rate increased [Unknown]
  - Peripheral swelling [Recovered/Resolved]
  - Respiratory rate increased [Unknown]
  - Dizziness [Recovered/Resolved]
